FAERS Safety Report 10220941 (Version 1)
Quarter: 2014Q2

REPORT INFORMATION
  Report Type: Spontaneous
  Country: US (occurrence: None)
  Receive Date: 20140605
  Receipt Date: 20140605
  Transmission Date: 20141212
  Serious: Yes (Life-Threatening, Disabling, Other)
  Sender: FDA-Public Use
  Company Number: None

PATIENT
  Age: 53 Year
  Sex: Female
  Weight: 61.24 kg

DRUGS (1)
  1. RECLAST [Suspect]
     Indication: BONE DENSITY ABNORMAL
     Dosage: 1 TIME?INTO A VEIN
     Route: 042
     Dates: start: 20140516

REACTIONS (13)
  - Influenza like illness [None]
  - Vision blurred [None]
  - Headache [None]
  - Activities of daily living impaired [None]
  - Hepatic enzyme abnormal [None]
  - Inflammation [None]
  - Asthenia [None]
  - Weight decreased [None]
  - Muscle atrophy [None]
  - Pallor [None]
  - Tinnitus [None]
  - Presyncope [None]
  - Visual impairment [None]
